FAERS Safety Report 4925790-0 (Version None)
Quarter: 2006Q1

REPORT INFORMATION
  Report Type: 
  Country: None (occurrence: None)
  Receive Date: 20060228
  Receipt Date: 20050322
  Transmission Date: 20060701
  Serious: No
  Sender: FDA-Public Use
  Company Number: US-GLAXOSMITHKLINE-A0550840A

PATIENT
  Age: 58 Year
  Sex: Male

DRUGS (7)
  1. LAMICTAL [Suspect]
     Indication: BIPOLAR DISORDER
     Dosage: 25MG PER DAY
     Route: 048
     Dates: start: 20050319
  2. ATENOLOL [Concomitant]
  3. ZESTRIL [Concomitant]
  4. PRILOSEC [Concomitant]
  5. ZANTAC [Concomitant]
  6. ECOTRIN [Concomitant]
  7. NITROSTAT [Concomitant]

REACTIONS (2)
  - HYPERVIGILANCE [None]
  - PAIN [None]
